FAERS Safety Report 5254130-5 (Version None)
Quarter: 2007Q1

REPORT INFORMATION
  Report Type: 
  Country: None (occurrence: None)
  Receive Date: 20070302
  Receipt Date: 20070227
  Transmission Date: 20070707
  Serious: Yes (Death)
  Sender: FDA-Public Use
  Company Number: JP-ROCHE-484906

PATIENT
  Age: 14 Year
  Sex: Male

DRUGS (2)
  1. TAMIFLU [Suspect]
     Route: 048
     Dates: start: 20070226, end: 20070226
  2. CALONAL [Concomitant]
     Route: 048
     Dates: start: 20070226, end: 20070226

REACTIONS (2)
  - ABNORMAL BEHAVIOUR [None]
  - SUICIDE ATTEMPT [None]
